FAERS Safety Report 9566080 (Version 2)
Quarter: 2014Q1

REPORT INFORMATION
  Report Type: Spontaneous
  Country: US (occurrence: US)
  Receive Date: 20130930
  Receipt Date: 20140317
  Transmission Date: 20141002
  Serious: Yes (Hospitalization, Other)
  Sender: FDA-Public Use
  Company Number: US-B.I. PHARMACEUTICALS,INC./RIDGEFIELD-2013-BI-30290BP

PATIENT
  Age: 76 Year
  Sex: Male
  Weight: 77.56 kg

DRUGS (9)
  1. PRADAXA [Suspect]
     Indication: ATRIAL FIBRILLATION
     Dosage: 300 MG
     Route: 048
     Dates: start: 20110808, end: 20110823
  2. COUMADIN [Suspect]
     Indication: PRODUCT USED FOR UNKNOWN INDICATION
     Dosage: 2 MG
     Route: 065
     Dates: end: 20111005
  3. JANUVIA [Concomitant]
     Dosage: 100 MG
     Route: 065
  4. PACERONE [Concomitant]
     Dosage: 200 MG
     Route: 065
  5. KLOR-CON [Concomitant]
     Dosage: 20 MEQ
     Route: 065
  6. BENICAR [Concomitant]
     Dosage: 20 MG
     Route: 065
  7. LASIX [Concomitant]
     Dosage: 40 MG
     Route: 065
  8. LIPITOR [Concomitant]
     Dosage: 20 MG
     Route: 065
  9. INDERAL [Concomitant]
     Dosage: 40 MG
     Route: 065

REACTIONS (5)
  - Haemorrhage intracranial [Unknown]
  - Ventricular tachycardia [Unknown]
  - Haematoma [Unknown]
  - Fall [Unknown]
  - Contusion [Unknown]
